FAERS Safety Report 6833886-1 (Version None)
Quarter: 2010Q3

REPORT INFORMATION
  Report Type: 
  Country: None (occurrence: None)
  Receive Date: 20100712
  Receipt Date: 20070404
  Transmission Date: 20110219
  Serious: No
  Sender: FDA-Public Use
  Company Number: US-PFIZER INC-2007027587

PATIENT
  Sex: Male
  Weight: 70.31 kg

DRUGS (5)
  1. CHANTIX [Suspect]
     Indication: SMOKING CESSATION THERAPY
     Dates: start: 20070301
  2. REYATAZ [Concomitant]
     Indication: HIV INFECTION
  3. INVIRASE [Concomitant]
     Indication: HIV INFECTION
  4. DEPO-TESTOSTERONE [Concomitant]
  5. ALL OTHER THERAPEUTIC PRODUCTS [Concomitant]
     Indication: BONE DENSITY DECREASED

REACTIONS (2)
  - FATIGUE [None]
  - FEELING ABNORMAL [None]
